FAERS Safety Report 7066368-5 (Version None)
Quarter: 2010Q4

REPORT INFORMATION
  Report Type: 
  Country: None (occurrence: None)
  Receive Date: 20101027
  Receipt Date: 20091209
  Transmission Date: 20110411
  Serious: No
  Sender: FDA-Public Use
  Company Number: US-WYE-H12593109

PATIENT
  Sex: Female
  Weight: 49.94 kg

DRUGS (2)
  1. PREMPRO [Suspect]
     Dosage: 07-OCT-2009 PATIENT SWITCHED TO 0.45MG/1.5MG, INITIAL DOSAGE UNKNOWN, FREQUENCY UNKNOWN
     Route: 048
  2. BONIVA [Suspect]
     Indication: OSTEOPOROSIS
     Route: 048
     Dates: start: 20091007

REACTIONS (1)
  - INSOMNIA [None]
